FAERS Safety Report 14566777 (Version 3)
Quarter: 2018Q1

REPORT INFORMATION
  Report Type: Spontaneous
  Country: US (occurrence: US)
  Receive Date: 20180223
  Receipt Date: 20180329
  Transmission Date: 20180509
  Serious: Yes (Hospitalization, Other)
  Sender: FDA-Public Use
  Company Number: US-UNITED THERAPEUTICS-UNT-2018-000131

PATIENT
  Age: 60 Year
  Sex: Male
  Weight: 77.98 kg

DRUGS (6)
  1. LETAIRIS [Concomitant]
     Active Substance: AMBRISENTAN
     Indication: PRODUCT USED FOR UNKNOWN INDICATION
     Route: 065
  2. TYVASO [Suspect]
     Active Substance: TREPROSTINIL
     Dosage: 60-120 MICROGRAMS, QID
  3. SILDENAFIL CITRATE. [Concomitant]
     Active Substance: SILDENAFIL CITRATE
     Indication: PRODUCT USED FOR UNKNOWN INDICATION
     Route: 065
  4. TYVASO [Suspect]
     Active Substance: TREPROSTINIL
     Indication: PULMONARY ARTERIAL HYPERTENSION
     Dosage: 18-90 MICROGRAMS, QID
     Dates: start: 20170303
  5. TYVASO [Suspect]
     Active Substance: TREPROSTINIL
     Dosage: UNK
  6. TYVASO [Suspect]
     Active Substance: TREPROSTINIL
     Dosage: UNK

REACTIONS (19)
  - Head discomfort [Unknown]
  - Dyspnoea [Unknown]
  - Respiratory syncytial virus infection [Unknown]
  - Fatigue [Unknown]
  - Nasopharyngitis [Unknown]
  - Decreased appetite [Unknown]
  - Influenza [Unknown]
  - Musculoskeletal chest pain [Unknown]
  - Rectal haemorrhage [Unknown]
  - Weight increased [Unknown]
  - Depression [Unknown]
  - Off label use [Unknown]
  - Pyrexia [Unknown]
  - Asthenia [Unknown]
  - Pain [Unknown]
  - Cough [Unknown]
  - Headache [Unknown]
  - Drug effect decreased [Unknown]
  - Nasal congestion [Unknown]

NARRATIVE: CASE EVENT DATE: 20180125
